FAERS Safety Report 8220416-5 (Version None)
Quarter: 2012Q1

REPORT INFORMATION
  Report Type: 
  Country: None (occurrence: None)
  Receive Date: 20120314
  Receipt Date: 20120305
  Transmission Date: 20120608
  Serious: Yes (Other)
  Sender: FDA-Public Use
  Company Number: 2012SP002267

PATIENT
  Age: 47 Year
  Sex: Male

DRUGS (3)
  1. ZOLOFT [Concomitant]
  2. SAPHRIS [Suspect]
     Indication: BIPOLAR DISORDER
     Dosage: 5 MG;QD;SL
     Route: 060
     Dates: start: 20111102, end: 20111109
  3. GABAPENTIN [Concomitant]

REACTIONS (4)
  - ANXIETY [None]
  - DYSPHAGIA [None]
  - SPEECH DISORDER [None]
  - ANGIOEDEMA [None]
